FAERS Safety Report 10233003 (Version 1)
Quarter: 2014Q2

REPORT INFORMATION
  Report Type: Spontaneous
  Country: US (occurrence: US)
  Receive Date: 20140612
  Receipt Date: 20140612
  Transmission Date: 20141212
  Serious: No
  Sender: FDA-Public Use
  Company Number: US-PFIZER INC-2014157564

PATIENT
  Age: 81 Year
  Sex: Male
  Weight: 47.6 kg

DRUGS (2)
  1. XALKORI [Suspect]
     Indication: LUNG NEOPLASM MALIGNANT
     Dosage: 250 MG, 2X/DAY
  2. SIMVASTATIN [Concomitant]
     Dosage: 10 MG, DAILY

REACTIONS (2)
  - Blood potassium increased [Unknown]
  - Blood potassium decreased [Unknown]
